FAERS Safety Report 24562950 (Version 1)
Quarter: 2024Q4

REPORT INFORMATION
  Report Type: Spontaneous
  Country: CN (occurrence: CN)
  Receive Date: 20241030
  Receipt Date: 20241030
  Transmission Date: 20250115
  Serious: Yes (Hospitalization)
  Sender: ACCORD
  Company Number: CN-MLMSERVICE-20241015-PI227474-00232-1

PATIENT
  Age: 64 Year
  Sex: Female

DRUGS (5)
  1. MYCOPHENOLIC ACID [Suspect]
     Active Substance: MYCOPHENOLIC ACID
     Indication: Immunosuppressant drug therapy
     Dosage: 360MG IN THE MORNING AND 180MG IN THE EVENING
     Route: 048
     Dates: start: 202206, end: 202207
  2. TACROLIMUS [Suspect]
     Active Substance: TACROLIMUS
     Indication: Immunosuppressant drug therapy
     Dosage: 3 MG EVERY 12 HOURS
     Route: 048
     Dates: start: 202206, end: 202207
  3. MYCOPHENOLIC ACID [Suspect]
     Active Substance: MYCOPHENOLIC ACID
     Indication: Immunosuppressant drug therapy
     Dosage: 360MG IN THE MORNING AND 180MG IN THE EVENING, ENTERIC-COATED
     Route: 048
     Dates: start: 202206, end: 202207
  4. TACROLIMUS [Suspect]
     Active Substance: TACROLIMUS
     Indication: Immunosuppressant drug therapy
     Dosage: 1 MG Q12H
     Route: 048
     Dates: start: 202207, end: 202207
  5. TACROLIMUS [Suspect]
     Active Substance: TACROLIMUS
     Indication: Immunosuppressant drug therapy
     Dosage: 2MG Q12H
     Route: 048
     Dates: start: 202207, end: 202207

REACTIONS (17)
  - Human herpesvirus 6 encephalitis [Recovered/Resolved]
  - Bronchitis [Unknown]
  - Candida infection [Unknown]
  - Influenza [Unknown]
  - Mycobacterium fortuitum infection [Unknown]
  - Enterococcal infection [Unknown]
  - Aspergillus infection [Unknown]
  - Human herpesvirus 7 infection [Unknown]
  - Pruritus [Unknown]
  - Anxiety [Recovering/Resolving]
  - Incoherent [Recovering/Resolving]
  - Prohormone brain natriuretic peptide increased [Unknown]
  - Pulmonary oedema [Unknown]
  - Pleural effusion [Unknown]
  - Lacunar infarction [Recovering/Resolving]
  - Cerebral atrophy [Recovering/Resolving]
  - Blood creatinine increased [Unknown]

NARRATIVE: CASE EVENT DATE: 20220101
